FAERS Safety Report 8880310 (Version 1)
Quarter: 2012Q4

REPORT INFORMATION
  Report Type: 
  Country: US (occurrence: US)
  Receive Date: 20121031
  Receipt Date: 20121031
  Transmission Date: 20130627
  Serious: Yes (Other)
  Sender: FDA-Public Use
  Company Number: CHPA2012US022707

PATIENT
  Age: 67 Year
  Sex: Female

DRUGS (5)
  1. EXCEDRIN TENSION HEADACHE [Suspect]
     Indication: HEADACHE
     Dosage: 1 DF, PRN
     Route: 048
     Dates: start: 2002
  2. METOPROLOL [Concomitant]
     Dosage: Unk, Unk
  3. LIPITOR [Concomitant]
     Indication: BLOOD CHOLESTEROL INCREASED
     Dosage: 10 mg, QD
     Dates: start: 2000
  4. PLAVIX [Concomitant]
     Indication: CEREBROVASCULAR ACCIDENT
     Dosage: 40 mg, QD
  5. CARDIA [Concomitant]
     Indication: HYPERTENSION
     Dosage: 300 mg, QD
     Dates: start: 1995

REACTIONS (2)
  - Pain [Not Recovered/Not Resolved]
  - Underdose [Unknown]
